FAERS Safety Report 23257856 (Version 1)
Quarter: 2023Q4

REPORT INFORMATION
  Report Type: Spontaneous
  Country: CH (occurrence: CH)
  Receive Date: 20231204
  Receipt Date: 20231204
  Transmission Date: 20240110
  Serious: Yes (Other)
  Sender: FDA-Public Use
  Company Number: CH-ORGANON-O2312CHE000020

PATIENT
  Age: 7 Year
  Sex: Female

DRUGS (1)
  1. MOMETASONE FUROATE [Suspect]
     Active Substance: MOMETASONE FUROATE
     Dosage: APPLICATION TWICE A WEEK (BIW) ON THE THIGH
     Route: 061
     Dates: start: 2020

REACTIONS (2)
  - Neoplasm malignant [Unknown]
  - Skin striae [Unknown]

NARRATIVE: CASE EVENT DATE: 20230601
